FAERS Safety Report 5287609-0 (Version None)
Quarter: 2007Q1

REPORT INFORMATION
  Report Type: 
  Country: None (occurrence: None)
  Receive Date: 20070124
  Receipt Date: 20060403
  Transmission Date: 20070707
  Serious: Yes (Hospitalization, Other)
  Sender: FDA-Public Use
  Company Number: WAES 0604USA00152

PATIENT
  Sex: Male

DRUGS (2)
  1. INVANZ [Suspect]
     Indication: FISTULA
     Dosage: 1 GM/INJ
     Dates: start: 20060401, end: 20060401
  2. INVANZ [Suspect]
     Indication: INFECTION
     Dosage: 1 GM/INJ
     Dates: start: 20060401, end: 20060401

REACTIONS (1)
  - RASH [None]
